FAERS Safety Report 18330553 (Version 4)
Quarter: 2021Q3

REPORT INFORMATION
  Report Type: Report from Study
  Country: JP (occurrence: JP)
  Receive Date: 20200930
  Receipt Date: 20210924
  Transmission Date: 20211014
  Serious: Yes (Hospitalization, Other)
  Sender: FDA-Public Use
  Company Number: JP-JNJFOC-A-CH2016-141905

PATIENT
  Age: 41 Year
  Sex: Female
  Weight: 49 kg

DRUGS (34)
  1. UPTRAVI [Suspect]
     Active Substance: SELEXIPAG
     Dosage: 0.4 MG, QID
     Route: 048
     Dates: start: 20180905, end: 201809
  2. UPTRAVI [Suspect]
     Active Substance: SELEXIPAG
     Dosage: UNK
     Route: 048
     Dates: end: 20200127
  3. ADCIRCA [Suspect]
     Active Substance: TADALAFIL
     Dosage: 40 MG, QD
     Route: 048
     Dates: start: 20170104, end: 20170328
  4. FUROSEMIDE. [Concomitant]
     Active Substance: FUROSEMIDE
     Dosage: 20 MG, QD
     Dates: start: 20180801
  5. UPTRAVI [Suspect]
     Active Substance: SELEXIPAG
     Indication: PULMONARY ARTERIAL HYPERTENSION
     Dosage: 0.2 MG, BID
     Route: 048
     Dates: start: 20180131, end: 20180204
  6. UPTRAVI [Suspect]
     Active Substance: SELEXIPAG
     Dosage: 0.3 MG TWO TIMES AND 0.4 MG 2 TIMES
     Route: 048
     Dates: start: 20180614, end: 20180904
  7. ADEMPAS [Interacting]
     Active Substance: RIOCIGUAT
     Dosage: 6 MG, QD
     Route: 048
     Dates: start: 20160413, end: 20160609
  8. FUROSEMIDE. [Concomitant]
     Active Substance: FUROSEMIDE
     Indication: CARDIAC FAILURE CHRONIC
     Dosage: 40 MG, QD
     Dates: start: 201801, end: 20180731
  9. SPIRONOLACTONE. [Concomitant]
     Active Substance: SPIRONOLACTONE
     Indication: CARDIAC FAILURE
     Dosage: 50 MG, QD
     Route: 048
     Dates: start: 201801, end: 20180904
  10. MIYA?BM [Concomitant]
     Active Substance: CLOSTRIDIUM BUTYRICUM SPORES STRAIN M-55
     Dosage: UNK
     Dates: start: 201801, end: 20180306
  11. OPSUMIT [Suspect]
     Active Substance: MACITENTAN
     Indication: PULMONARY ARTERIAL HYPERTENSION
     Dosage: 10 MG, QD
     Route: 048
     Dates: start: 20160303
  12. UPTRAVI [Suspect]
     Active Substance: SELEXIPAG
     Dosage: 0.3 MG, QID
     Route: 048
     Dates: start: 20180425, end: 20180613
  13. ADEMPAS [Interacting]
     Active Substance: RIOCIGUAT
     Indication: PULMONARY ARTERIAL HYPERTENSION
     Dosage: 1.5 MG, QD
     Route: 048
     Dates: start: 20160309, end: 20160315
  14. LAC?B [Concomitant]
     Active Substance: BIFIDOBACTERIUM SPP.
     Dosage: UNK
     Dates: start: 20180530
  15. TRAVELMIN [Concomitant]
     Indication: VERTEBROBASILAR INSUFFICIENCY
     Dosage: UNK
     Dates: start: 20170119
  16. ASPARA POTASSIUM [Concomitant]
     Active Substance: POTASSIUM ASPARTATE
     Dosage: UNK
  17. UPTRAVI [Suspect]
     Active Substance: SELEXIPAG
     Dosage: 0.4 MG, BID
     Route: 048
     Dates: start: 20180205, end: 20180326
  18. UPTRAVI [Suspect]
     Active Substance: SELEXIPAG
     Dosage: 0.5 MG, BID
     Route: 048
     Dates: start: 20180327, end: 20180424
  19. ADCIRCA [Suspect]
     Active Substance: TADALAFIL
     Indication: PULMONARY ARTERIAL HYPERTENSION
     Dosage: 20 MG, QD
     Route: 048
     Dates: start: 20160217, end: 20160308
  20. OXYGEN. [Concomitant]
     Active Substance: OXYGEN
  21. SPIRONOLACTONE. [Concomitant]
     Active Substance: SPIRONOLACTONE
     Dosage: 25 MG, QD
     Dates: start: 20180905
  22. ADCIRCA [Suspect]
     Active Substance: TADALAFIL
     Dosage: 20 MG, BID
     Route: 048
     Dates: start: 20170329
  23. CAPTOPRIL. [Concomitant]
     Active Substance: CAPTOPRIL
     Dosage: UNK
     Route: 048
     Dates: end: 20170119
  24. ASPARA POTASSIUM [Concomitant]
     Active Substance: POTASSIUM ASPARTATE
     Indication: HYPOKALAEMIA
     Dosage: 300 MG, QD
     Dates: start: 201801, end: 20180725
  25. NEXIUM [Concomitant]
     Active Substance: ESOMEPRAZOLE MAGNESIUM
     Dosage: 20 MG, QD
  26. ADEMPAS [Interacting]
     Active Substance: RIOCIGUAT
     Dosage: 7.5 MG, QD
     Route: 048
     Dates: start: 20160610, end: 20161226
  27. UPTRAVI [Suspect]
     Active Substance: SELEXIPAG
     Dosage: 0.4 MG, QID
     Route: 048
     Dates: start: 20181214
  28. ADEMPAS [Interacting]
     Active Substance: RIOCIGUAT
     Dosage: 3 MG, QD
     Route: 048
     Dates: start: 20160316, end: 20160322
  29. DIAZEPAM. [Concomitant]
     Active Substance: DIAZEPAM
  30. MAGLAX [Concomitant]
     Active Substance: MAGNESIUM OXIDE
  31. LAC?B [Concomitant]
     Active Substance: BIFIDOBACTERIUM SPP.
     Indication: CONSTIPATION
     Dosage: 3 G, QD
     Dates: start: 20180307, end: 20180321
  32. UPTRAVI [Suspect]
     Active Substance: SELEXIPAG
     Dosage: 1.4 MG, QD
     Route: 048
     Dates: start: 201809, end: 20181213
  33. ADEMPAS [Interacting]
     Active Substance: RIOCIGUAT
     Dosage: 4.5 MG, QD
     Route: 048
     Dates: start: 20160323, end: 20160412
  34. ADEMPAS [Interacting]
     Active Substance: RIOCIGUAT
     Dosage: 4.5 MG, QD
     Route: 048
     Dates: start: 20161227, end: 20170103

REACTIONS (38)
  - Pulmonary artery dilatation [Unknown]
  - Epistaxis [Recovered/Resolved]
  - Dental caries [Recovered/Resolved]
  - Hypoxia [Unknown]
  - Blood pressure decreased [Recovering/Resolving]
  - Toothache [Recovered/Resolved]
  - Hypotension [Recovered/Resolved]
  - Pain in extremity [Recovering/Resolving]
  - Dizziness [Recovering/Resolving]
  - Oropharyngeal pain [Recovered/Resolved]
  - Infection [Recovered/Resolved]
  - Haemoptysis [Recovered/Resolved]
  - Vasodilatation [Recovering/Resolving]
  - Productive cough [Recovered/Resolved]
  - Vertebrobasilar insufficiency [Recovering/Resolving]
  - Iron deficiency anaemia [Recovering/Resolving]
  - Diarrhoea [Recovered/Resolved]
  - Arrhythmia [Not Recovered/Not Resolved]
  - Right ventricular hypertrophy [Unknown]
  - Clubbing [Unknown]
  - Chronic gastritis [Recovered/Resolved]
  - Arthralgia [Recovering/Resolving]
  - Chest pain [Recovering/Resolving]
  - Headache [Recovering/Resolving]
  - Rhinitis [Recovering/Resolving]
  - Cough [Recovered/Resolved]
  - Dyspnoea [Recovered/Resolved]
  - Tooth extraction [Unknown]
  - Hyperthyroidism [Recovered/Resolved]
  - Pulmonary arterial pressure increased [Unknown]
  - Cyanosis [Unknown]
  - Malaise [Recovered/Resolved]
  - Upper respiratory tract inflammation [Recovered/Resolved]
  - Drug interaction [Unknown]
  - Nasopharyngitis [Recovered/Resolved]
  - Vertigo [Recovering/Resolving]
  - Nausea [Recovered/Resolved]
  - Sciatica [Recovering/Resolving]

NARRATIVE: CASE EVENT DATE: 20160304
